FAERS Safety Report 6125009-1 (Version None)
Quarter: 2009Q1

REPORT INFORMATION
  Report Type: 
  Country: None (occurrence: None)
  Receive Date: 20090319
  Receipt Date: 20090306
  Transmission Date: 20090719
  Serious: Yes (Death, Hospitalization)
  Sender: FDA-Public Use
  Company Number: US-PFIZER INC-2009179664

PATIENT

DRUGS (1)
  1. ZYVOX [Suspect]
     Indication: DIABETIC FOOT INFECTION

REACTIONS (2)
  - ILL-DEFINED DISORDER [None]
  - LACTIC ACIDOSIS [None]
